FAERS Safety Report 8219461-5 (Version None)
Quarter: 2012Q1

REPORT INFORMATION
  Report Type: 
  Country: None (occurrence: None)
  Receive Date: 20120319
  Receipt Date: 20120313
  Transmission Date: 20120608
  Serious: No
  Sender: FDA-Public Use
  Company Number: US-PFIZER INC-2012067431

PATIENT
  Sex: Female

DRUGS (10)
  1. LOTRIMIN [Suspect]
  2. TIGAN [Suspect]
  3. METROGEL [Suspect]
  4. MORPHINE SULFATE [Suspect]
  5. AMOXICILLIN [Suspect]
  6. CEFTIN [Suspect]
  7. CIPROFLOXACIN HYDROCHLORIDE [Suspect]
  8. POTASSIUM PENCILLIN G [Suspect]
  9. MACRODANTIN [Suspect]
  10. SULFAMETHOXAZOLE [Suspect]

REACTIONS (1)
  - DRUG HYPERSENSITIVITY [None]
